FAERS Safety Report 5158764-8 (Version None)
Quarter: 2006Q4

REPORT INFORMATION
  Report Type: 
  Country: None (occurrence: None)
  Receive Date: 20061128
  Receipt Date: 20040109
  Transmission Date: 20070319
  Serious: Yes (Other)
  Sender: FDA-Public Use
  Company Number: US-PURDUE-USA_2004_0012398

PATIENT
  Age: 23 Year
  Sex: Female

DRUGS (1)
  1. OXYCONTIN [Suspect]
     Indication: DRUG ABUSER
     Dosage: UNK, UNK
     Route: 045

REACTIONS (4)
  - CHILD ABUSE [None]
  - DRUG ABUSER [None]
  - DRUG DEPENDENCE [None]
  - HOMICIDE [None]
